FAERS Safety Report 8621585-5 (Version None)
Quarter: 2012Q3

REPORT INFORMATION
  Report Type: 
  Country: None (occurrence: None)
  Receive Date: 20120820
  Receipt Date: 20120820
  Transmission Date: 20120928
  Serious: Yes (Life-Threatening, Hospitalization, Disabling, Congenital Anomaly)
  Sender: FDA-Public Use
  Company Number: None

PATIENT
  Age: 39 Year
  Sex: Female
  Weight: 77.5651 kg

DRUGS (4)
  1. ONDANSETRON [Suspect]
     Indication: NAUSEA
     Dosage: 4 MG TWICE IV
     Route: 042
     Dates: start: 20120702, end: 20120702
  2. ONDANSETRON [Suspect]
     Indication: VOMITING
     Dosage: 4 MG TWICE IV
     Route: 042
     Dates: start: 20120702, end: 20120702
  3. PROMETHAZINE [Suspect]
     Indication: NAUSEA
     Dosage: 12.5 MG ONCE IV
     Route: 042
     Dates: start: 20120702, end: 20120702
  4. PROMETHAZINE [Suspect]
     Indication: VOMITING
     Dosage: 12.5 MG ONCE IV
     Route: 042
     Dates: start: 20120702, end: 20120702

REACTIONS (2)
  - TORSADE DE POINTES [None]
  - VENTRICULAR FIBRILLATION [None]
